FAERS Safety Report 7246411-0 (Version None)
Quarter: 2011Q1

REPORT INFORMATION
  Report Type: 
  Country: None (occurrence: None)
  Receive Date: 20110126
  Receipt Date: 20101025
  Transmission Date: 20110831
  Serious: No
  Sender: FDA-Public Use
  Company Number: US-BAUSCH-2010BL006039

PATIENT
  Age: 76 Year
  Sex: Female

DRUGS (4)
  1. SYSTANE ULTRA [Concomitant]
     Indication: DRY EYE
  2. SIMVASTATIN [Concomitant]
     Indication: BLOOD CHOLESTEROL INCREASED
  3. NEXIUM [Concomitant]
     Indication: GASTROOESOPHAGEAL REFLUX DISEASE
  4. ZYLET [Suspect]
     Indication: EYE INFLAMMATION
     Route: 047
     Dates: start: 20101015, end: 20101016

REACTIONS (1)
  - ERYTHEMA OF EYELID [None]
